FAERS Safety Report 15786567 (Version 1)
Quarter: 2018Q4

REPORT INFORMATION
  Report Type: Spontaneous
  Country: US (occurrence: US)
  Receive Date: 20181212
  Receipt Date: 20181212
  Transmission Date: 20190205
  Serious: No
  Sender: FDA-Public Use
  Company Number: None

PATIENT
  Age: 34 Year
  Sex: Female

DRUGS (16)
  1. LETAIRIS [Suspect]
     Active Substance: AMBRISENTAN
     Indication: PULMONARY ARTERIAL HYPERTENSION
     Route: 048
     Dates: start: 201606, end: 201810
  2. FLAGYL [Concomitant]
     Active Substance: METRONIDAZOLE\METRONIDAZOLE HYDROCHLORIDE
  3. K-TAB [Concomitant]
     Active Substance: POTASSIUM CHLORIDE
  4. SPIRONOLACTONE. [Concomitant]
     Active Substance: SPIRONOLACTONE
  5. ADVAIR HFA [Concomitant]
     Active Substance: FLUTICASONE PROPIONATE\SALMETEROL XINAFOATE
  6. WARFARIN [Concomitant]
     Active Substance: WARFARIN
  7. ADEMPAS [Concomitant]
     Active Substance: RIOCIGUAT
  8. OXYCODONE [Concomitant]
     Active Substance: OXYCODONE
  9. FUROSEMIDE. [Concomitant]
     Active Substance: FUROSEMIDE
  10. ALBUTEROL. [Concomitant]
     Active Substance: ALBUTEROL
  11. VANTIN [Concomitant]
     Active Substance: CEFPODOXIME PROXETIL
  12. LIDOCAINE TOP OINT [Concomitant]
  13. LIDOCAINE TOP PATCH [Concomitant]
  14. NORCO [Concomitant]
     Active Substance: ACETAMINOPHEN\HYDROCODONE BITARTRATE
  15. FLONASE [Concomitant]
     Active Substance: FLUTICASONE PROPIONATE
  16. PANTOPRAZOLE [Concomitant]
     Active Substance: PANTOPRAZOLE

REACTIONS (4)
  - Sepsis [None]
  - Diverticulitis [None]
  - Presyncope [None]
  - Liver function test increased [None]

NARRATIVE: CASE EVENT DATE: 20181001
